FAERS Safety Report 16040285 (Version 1)
Quarter: 2019Q1

REPORT INFORMATION
  Report Type: Spontaneous
  Country: DK (occurrence: DK)
  Receive Date: 20190306
  Receipt Date: 20190306
  Transmission Date: 20190418
  Serious: Yes (Hospitalization, Other)
  Sender: FDA-Public Use
  Company Number: DK-PFIZER INC-2019091113

PATIENT
  Age: 72 Year
  Sex: Male

DRUGS (4)
  1. RIFABUTIN. [Suspect]
     Active Substance: RIFABUTIN
     Indication: TUBERCULOSIS LIVER
     Dosage: UNK
     Route: 048
     Dates: start: 20150211, end: 20150225
  2. RIMACTAN [RIFAMPICIN SODIUM] [Suspect]
     Active Substance: RIFAMPIN SODIUM
     Indication: TUBERCULOSIS LIVER
     Dosage: UNK
     Route: 048
     Dates: start: 20140718, end: 20141009
  3. MYAMBUTOL [Concomitant]
     Active Substance: ETHAMBUTOL HYDROCHLORIDE
     Indication: TUBERCULOSIS LIVER
     Dosage: UNK
     Route: 048
     Dates: start: 20140718
  4. ISONIAZID. [Concomitant]
     Active Substance: ISONIAZID
     Indication: TUBERCULOSIS LIVER
     Dosage: UNK
     Route: 048
     Dates: start: 20140718, end: 20141009

REACTIONS (4)
  - Drug reaction with eosinophilia and systemic symptoms [Recovered/Resolved]
  - Rash [Recovered/Resolved]
  - Pruritus [Recovered/Resolved]
  - Erythema [Recovered/Resolved]

NARRATIVE: CASE EVENT DATE: 201408
